FAERS Safety Report 6818402-2 (Version None)
Quarter: 2010Q3

REPORT INFORMATION
  Report Type: 
  Country: None (occurrence: None)
  Receive Date: 20100706
  Receipt Date: 20080108
  Transmission Date: 20110219
  Serious: No
  Sender: FDA-Public Use
  Company Number: US-PFIZER INC-2008003728

PATIENT
  Sex: Male

DRUGS (4)
  1. ZITHROMAX [Suspect]
     Route: 048
     Dates: start: 20080103, end: 20080106
  2. WARFARIN SODIUM [Concomitant]
  3. TOPROL-XL [Concomitant]
  4. ALTACE [Concomitant]

REACTIONS (1)
  - TINNITUS [None]
